FAERS Safety Report 8380078-3 (Version None)
Quarter: 2012Q2

REPORT INFORMATION
  Report Type: 
  Country: None (occurrence: None)
  Receive Date: 20120523
  Receipt Date: 20120515
  Transmission Date: 20120825
  Serious: Yes (Other)
  Sender: FDA-Public Use
  Company Number: GB-GLAXOSMITHKLINE-B0784536A

PATIENT

DRUGS (7)
  1. CLOPIDOGREL [Concomitant]
     Dosage: 75MG PER DAY
  2. PAROXETINE [Concomitant]
     Route: 048
  3. METFORMIN HCL [Concomitant]
     Dosage: 3000MG PER DAY
  4. AVANDIA [Suspect]
     Indication: DIABETES MELLITUS
     Route: 065
     Dates: start: 20030522, end: 20081202
  5. SILDENAFIL [Concomitant]
     Dosage: 100MG PER DAY
  6. SIMVASTATIN [Concomitant]
     Dosage: 80MG PER DAY
  7. RAMIPRIL [Concomitant]
     Dosage: 10MG PER DAY

REACTIONS (9)
  - CARDIAC DISORDER [None]
  - AFFECTIVE DISORDER [None]
  - DISABILITY [None]
  - GENERAL PHYSICAL HEALTH DETERIORATION [None]
  - PAIN [None]
  - EMOTIONAL DISTRESS [None]
  - DYSPNOEA [None]
  - CORONARY ARTERY DISEASE [None]
  - CHEST PAIN [None]
